FAERS Safety Report 6270500-0 (Version None)
Quarter: 2009Q3

REPORT INFORMATION
  Report Type: 
  Country: None (occurrence: None)
  Receive Date: 20090716
  Receipt Date: 20090713
  Transmission Date: 20100115
  Serious: Yes (Life-Threatening)
  Sender: FDA-Public Use
  Company Number: JP-AVENTIS-200911229JP

PATIENT
  Age: 35 Year
  Sex: Female
  Weight: 46 kg

DRUGS (6)
  1. LANTUS [Suspect]
     Dosage: DOSE: 45 TO 50 UNITS/DAY
     Route: 058
     Dates: start: 20051026, end: 20081211
  2. OPTICLIK (INSULIN INJECTION PEN) [Suspect]
  3. BASEN [Concomitant]
     Route: 048
     Dates: end: 20090408
  4. LIPITOR [Concomitant]
     Route: 048
     Dates: end: 20090408
  5. NU-LOTAN [Concomitant]
     Indication: DIABETIC NEPHROPATHY
     Route: 048
     Dates: end: 20090408
  6. GLYCORAN [Concomitant]
     Route: 048
     Dates: start: 20050715, end: 20090408

REACTIONS (4)
  - CARCINOID SYNDROME [None]
  - GLUCAGONOMA [None]
  - HYPOGLYCAEMIA [None]
  - METASTASES TO LIVER [None]
